FAERS Safety Report 6419115-1 (Version None)
Quarter: 2009Q4

REPORT INFORMATION
  Report Type: 
  Country: None (occurrence: None)
  Receive Date: 20091029
  Receipt Date: 20091016
  Transmission Date: 20100525
  Serious: Yes (Other)
  Sender: FDA-Public Use
  Company Number: US-ROCHE-648155

PATIENT
  Sex: Female
  Weight: 81.6 kg

DRUGS (2)
  1. CAPECITABINE [Suspect]
     Dosage: HELD FOR TWO WEEKS.
     Route: 048
     Dates: start: 20090725
  2. CAPECITABINE [Suspect]
     Route: 048
     Dates: start: 20090731, end: 20090916

REACTIONS (4)
  - BLISTER [None]
  - DYSSTASIA [None]
  - INFLAMMATION [None]
  - SKIN EXFOLIATION [None]
